FAERS Safety Report 23090098 (Version 2)
Quarter: 2023Q4

REPORT INFORMATION
  Report Type: Spontaneous
  Country: CH (occurrence: CH)
  Receive Date: 20231020
  Receipt Date: 20231113
  Transmission Date: 20240109
  Serious: Yes (Death, Hospitalization)
  Sender: FDA-Public Use
  Company Number: CH-NOVOPROD-1110836

PATIENT
  Age: 34 Year
  Sex: Male

DRUGS (4)
  1. SAXENDA [Suspect]
     Active Substance: LIRAGLUTIDE
     Indication: Obesity
     Dosage: 1.8 MG
     Route: 058
     Dates: start: 20210506
  2. SAXENDA [Suspect]
     Active Substance: LIRAGLUTIDE
     Dosage: 3 MG
     Route: 058
  3. ZINC GLUCONATE [Concomitant]
     Active Substance: ZINC GLUCONATE
     Indication: Product used for unknown indication
     Dosage: UNK (1)
     Route: 048
  4. CHOLECALCIFEROL [Concomitant]
     Active Substance: CHOLECALCIFEROL
     Indication: Product used for unknown indication
     Dosage: 0.6
     Route: 048

REACTIONS (3)
  - Pancreatitis necrotising [Fatal]
  - Haemorrhage [Fatal]
  - Septic shock [Fatal]
